FAERS Safety Report 7441668-5 (Version None)
Quarter: 2011Q2

REPORT INFORMATION
  Report Type: 
  Country: None (occurrence: None)
  Receive Date: 20110425
  Receipt Date: 20110425
  Transmission Date: 20111010
  Serious: No
  Sender: FDA-Public Use
  Company Number: None

PATIENT
  Age: 58 Year
  Sex: Female
  Weight: 81.6475 kg

DRUGS (1)
  1. MECLIZINE [Suspect]
     Indication: DIZZINESS
     Dosage: 1 TABLET 3XDAY PO
     Route: 048
     Dates: start: 20100924, end: 20100927

REACTIONS (3)
  - EYE IRRITATION [None]
  - VISION BLURRED [None]
  - MYDRIASIS [None]
